FAERS Safety Report 5397631-1 (Version None)
Quarter: 2007Q3

REPORT INFORMATION
  Report Type: 
  Country: None (occurrence: None)
  Receive Date: 20070723
  Receipt Date: 20070723
  Transmission Date: 20080115
  Serious: No
  Sender: FDA-Public Use
  Company Number: None

PATIENT
  Age: 55 Year
  Sex: Male
  Weight: 79.3795 kg

DRUGS (2)
  1. LIPITOR [Suspect]
     Dosage: 1 DAILY
     Dates: start: 20030701, end: 20070703
  2. ADVICOR [Suspect]
     Dosage: 1 DAILY
     Dates: start: 20070704, end: 20070707

REACTIONS (2)
  - ARTHRALGIA [None]
  - MYOPATHY [None]
